FAERS Safety Report 26077035 (Version 1)
Quarter: 2025Q4

REPORT INFORMATION
  Report Type: Spontaneous
  Country: US (occurrence: None)
  Receive Date: 20251121
  Receipt Date: 20251121
  Transmission Date: 20260117
  Serious: No
  Sender: FDA-CTU
  Company Number: None

PATIENT
  Age: 6 Month
  Sex: Male
  Weight: 8.62 kg

DRUGS (2)
  1. BEYFORTUS [Suspect]
     Active Substance: NIRSEVIMAB-ALIP
     Dosage: 0.5 MG/ML ONCE INTRAMUSCULAR
     Route: 030
  2. Beyfortus 50mg [Concomitant]
     Dates: start: 20251105, end: 20251105

REACTIONS (1)
  - Incorrect dose administered [None]

NARRATIVE: CASE EVENT DATE: 20251105
